FAERS Safety Report 9193051 (Version 2)
Quarter: 2013Q2

REPORT INFORMATION
  Report Type: Spontaneous
  Country: JP (occurrence: JP)
  Receive Date: 20130327
  Receipt Date: 20130410
  Transmission Date: 20140414
  Serious: Yes (Hospitalization, Other)
  Sender: FDA-Public Use
  Company Number: JP-ASTELLAS-2013JP004165

PATIENT
  Age: 19 Year
  Sex: Male

DRUGS (6)
  1. PROGRAF [Suspect]
     Indication: COLITIS ULCERATIVE
     Dosage: UNK
     Route: 048
  2. PREDNISOLONE SODIUM SUCCINATE [Suspect]
     Indication: PYODERMA GANGRENOSUM
     Dosage: 0.6 MG/KG, UNKNOWN/D
     Route: 042
  3. CORTICOSTEROID NOS [Suspect]
     Indication: COLITIS ULCERATIVE
     Dosage: UNK
     Route: 065
  4. CORTICOSTEROID NOS [Concomitant]
     Indication: PYODERMA GANGRENOSUM
     Route: 061
  5. AMINOSALICYLATE [Concomitant]
     Indication: COLITIS ULCERATIVE
     Route: 065
  6. AZATHIOPRINE [Concomitant]
     Indication: COLITIS ULCERATIVE
     Route: 048

REACTIONS (3)
  - Drug ineffective [Unknown]
  - Colitis ulcerative [Recovering/Resolving]
  - Cytomegalovirus infection [Unknown]
